FAERS Safety Report 20503405 (Version 1)
Quarter: 2022Q1

REPORT INFORMATION
  Report Type: Report from Study
  Country: US (occurrence: None)
  Receive Date: 20220222
  Receipt Date: 20220222
  Transmission Date: 20220423
  Serious: Yes (Death)
  Sender: FDA-Public Use
  Company Number: 2022A079939

PATIENT
  Sex: Male
  Weight: 93.4 kg

DRUGS (20)
  1. CALQUENCE [Suspect]
     Active Substance: ACALABRUTINIB
     Indication: Chronic lymphocytic leukaemia
     Route: 048
     Dates: start: 20211124
  2. ALLEGRA [Concomitant]
     Active Substance: FEXOFENADINE HYDROCHLORIDE
  3. CALCIUM [Concomitant]
     Active Substance: CALCIUM
  4. CICLOPIROX [Concomitant]
     Active Substance: CICLOPIROX
  5. CLOBETASOL [Concomitant]
     Active Substance: CLOBETASOL
  6. FOSAMAX [Concomitant]
     Active Substance: ALENDRONATE SODIUM
  7. VASCEPA [Concomitant]
     Active Substance: ICOSAPENT ETHYL
  8. TAMSULOSIN [Concomitant]
     Active Substance: TAMSULOSIN
  9. ASPIRIN [Concomitant]
     Active Substance: ASPIRIN
  10. VITAMINS [Concomitant]
     Active Substance: VITAMINS
  11. VITAMIN D3 [Concomitant]
     Active Substance: CHOLECALCIFEROL
  12. COD LIVER OIL [Concomitant]
     Active Substance: COD LIVER OIL
  13. VITAMIN B12 [Concomitant]
     Active Substance: CYANOCOBALAMIN
  14. GARLIC [Concomitant]
     Active Substance: GARLIC
  15. VITAMIN 3 [Concomitant]
  16. VITAMIN C [Concomitant]
     Active Substance: ASCORBIC ACID
  17. COENZYME Q10 [Concomitant]
     Active Substance: DIETARY SUPPLEMENT\UBIDECARENONE
  18. MAGNESIUM OXIDE [Concomitant]
     Active Substance: MAGNESIUM OXIDE
  19. CHONDROITIN SULFATE A\GLUCOSAMINE [Concomitant]
     Active Substance: CHONDROITIN SULFATE A\GLUCOSAMINE
  20. STRESS B COMPLEX [Concomitant]

REACTIONS (1)
  - Death [Fatal]
